FAERS Safety Report 6598201-X (Version None)
Quarter: 2010Q1

REPORT INFORMATION
  Report Type: 
  Country: None (occurrence: None)
  Receive Date: 20100224
  Receipt Date: 20050228
  Transmission Date: 20100710
  Serious: No
  Sender: FDA-Public Use
  Company Number: US-ALLERGAN-200410232

PATIENT
  Age: 53 Year
  Sex: Female

DRUGS (5)
  1. BOTOX [Suspect]
     Indication: TORTICOLLIS
     Route: 030
  2. BOTOX [Suspect]
     Route: 030
  3. PAXIL [Concomitant]
     Indication: CHRONIC FATIGUE SYNDROME
     Dosage: 10MG, QAM
     Route: 048
     Dates: start: 19950101
  4. FOSAMAX [Concomitant]
     Indication: OSTEOPOROSIS
  5. UNSPECIFEID VITAMIN SUPPLEMENTS [Concomitant]
     Indication: CHRONIC FATIGUE SYNDROME

REACTIONS (1)
  - VERTIGO [None]
